FAERS Safety Report 7502264-4 (Version None)
Quarter: 2011Q2

REPORT INFORMATION
  Report Type: 
  Country: None (occurrence: None)
  Receive Date: 20110525
  Receipt Date: 20090411
  Transmission Date: 20111010
  Serious: Yes (Death, Hospitalization, Other)
  Sender: FDA-Public Use
  Company Number: US-BAYER-200917833NA

PATIENT
  Age: 57 Year
  Sex: Female
  Weight: 106.4 kg

DRUGS (17)
  1. HYDROCHLOROTHIAZIDE [Concomitant]
     Dosage: 12.5 MG, BID
     Route: 048
     Dates: start: 20040804
  2. PLATELETS [Concomitant]
     Dosage: 1 PACK
  3. PAPAVERINE [Concomitant]
     Dosage: UNK
     Route: 042
     Dates: start: 20040923, end: 20040923
  4. AMIODARONE HCL [Concomitant]
     Dosage: 200MG 3 TABS TWICE A DAY
     Route: 048
  5. HEPARIN [Concomitant]
     Dosage: 19700 U, UNK
     Route: 042
     Dates: start: 20040923, end: 20040923
  6. PROPOFOL [Concomitant]
     Dosage: UNK
     Route: 042
     Dates: start: 20040923, end: 20040923
  7. MIDAZOLAM HCL [Concomitant]
     Dosage: UNK
     Route: 042
     Dates: start: 20040923, end: 20040923
  8. PLASMA [Concomitant]
     Dosage: 3 U, UNK
  9. RED BLOOD CELLS [Concomitant]
     Dosage: 2 U, UNK
  10. MANNITOL [Concomitant]
     Dosage: 150 ML, UNK
     Route: 042
     Dates: start: 20040923, end: 20040923
  11. CEFAZOLIN [Concomitant]
     Dosage: 1 G, UNK
     Route: 042
     Dates: start: 20040923, end: 20040923
  12. FENTANYL [Concomitant]
     Dosage: UNK
     Route: 042
     Dates: start: 20040923, end: 20040923
  13. TRASYLOL [Suspect]
     Indication: PERICARDIAL EXCISION
  14. TRASYLOL [Suspect]
     Indication: CARDIAC OPERATION
     Dosage: UNK
     Dates: start: 20040923, end: 20040923
  15. TRASYLOL [Suspect]
     Indication: AORTIC VALVE REPLACEMENT
  16. PROTAMINE SULFATE [Concomitant]
     Dosage: 180 MG, UNK
     Route: 042
     Dates: start: 20040923, end: 20040923
  17. TRASYLOL [Suspect]
     Indication: CORONARY ARTERY BYPASS

REACTIONS (10)
  - ANXIETY [None]
  - COAGULOPATHY [None]
  - PAIN [None]
  - RENAL FAILURE [None]
  - ANHEDONIA [None]
  - INJURY [None]
  - UNEVALUABLE EVENT [None]
  - FEAR [None]
  - DEATH [None]
  - DEPRESSION [None]
